FAERS Safety Report 17612632 (Version 5)
Quarter: 2020Q3

REPORT INFORMATION
  Report Type: Report from Study
  Country: US (occurrence: US)
  Receive Date: 20200401
  Receipt Date: 20200703
  Transmission Date: 20201102
  Serious: No
  Sender: FDA-Public Use
  Company Number: NVSC2020US089851

PATIENT
  Age: 49 Year
  Sex: Female

DRUGS (1)
  1. COSENTYX [Suspect]
     Active Substance: SECUKINUMAB
     Indication: PSORIASIS
     Dosage: 300 MG, QW
     Route: 058
     Dates: start: 20200327

REACTIONS (10)
  - Somnolence [Unknown]
  - Lethargy [Unknown]
  - Discomfort [Unknown]
  - Fatigue [Unknown]
  - Swelling [Unknown]
  - Psoriasis [Unknown]
  - Vision blurred [Unknown]
  - Arthralgia [Unknown]
  - Pruritus [Unknown]
  - Myalgia [Unknown]

NARRATIVE: CASE EVENT DATE: 202004
